FAERS Safety Report 14577413 (Version 1)
Quarter: 2018Q1

REPORT INFORMATION
  Report Type: Spontaneous
  Country: US (occurrence: US)
  Receive Date: 20180227
  Receipt Date: 20180227
  Transmission Date: 20180509
  Serious: No
  Sender: FDA-Public Use
  Company Number: US-PFIZER INC-2018078666

PATIENT
  Age: 76 Year
  Sex: Female

DRUGS (8)
  1. VALSARTAN. [Concomitant]
     Active Substance: VALSARTAN
     Indication: HYPERTENSION
     Dosage: 320MG TABLET ONCE A DAY BY MOUTH
     Route: 048
  2. POTASSIUM CHLORIDE. [Concomitant]
     Active Substance: POTASSIUM CHLORIDE
     Indication: BLOOD POTASSIUM ABNORMAL
     Dosage: 20MEQ TWO TABLETS TWICE A DAY BY MOUTH
     Route: 048
  3. FUROSEMIDE. [Concomitant]
     Active Substance: FUROSEMIDE
     Indication: OEDEMA
     Dosage: 40MG TABLET TWICE A DAY BY MOUTH
     Route: 048
  4. BYSTOLIC [Concomitant]
     Active Substance: NEBIVOLOL HYDROCHLORIDE
     Indication: HYPERTENSION
     Dosage: 10MG TABLET THREE TIMES A DAY BY MOUTH
     Route: 048
  5. HYDRALAZINE [Concomitant]
     Active Substance: HYDRALAZINE HYDROCHLORIDE
     Indication: HYPERTENSION
     Dosage: 100MG TABLET 3 TIMES A DAY BY MOUTH
     Route: 048
  6. PROTONIX [Concomitant]
     Active Substance: PANTOPRAZOLE SODIUM
     Indication: ABDOMINAL DISCOMFORT
     Dosage: 20MG TABLET TWICE A DAY BY MOUTH
     Route: 048
  7. SIMVASTATIN. [Concomitant]
     Active Substance: SIMVASTATIN
     Indication: BLOOD CHOLESTEROL ABNORMAL
     Dosage: 20MG TABLET ONE TIME AT NIGHT
  8. REVATIO [Suspect]
     Active Substance: SILDENAFIL CITRATE
     Indication: PULMONARY HYPERTENSION
     Dosage: 20MG TABLET THREE TIMES A DAY BY MOUTH
     Route: 048
     Dates: start: 2013

REACTIONS (10)
  - Decreased appetite [Not Recovered/Not Resolved]
  - Pancreatic disorder [Unknown]
  - Asthenia [Recovering/Resolving]
  - Rhinorrhoea [Unknown]
  - Retching [Unknown]
  - Weight fluctuation [Unknown]
  - Nasopharyngitis [Not Recovered/Not Resolved]
  - Malaise [Unknown]
  - Sneezing [Unknown]
  - Vomiting [Unknown]

NARRATIVE: CASE EVENT DATE: 2017
